FAERS Safety Report 9140054 (Version 1)
Quarter: 2013Q1

REPORT INFORMATION
  Report Type: Spontaneous
  Country: US (occurrence: None)
  Receive Date: 20130204
  Receipt Date: 20130204
  Transmission Date: 20140127
  Serious: Yes (Death)
  Sender: FDA-Public Use
  Company Number: NSR_00942_2013

PATIENT
  Age: 44 Year
  Sex: Female

DRUGS (8)
  1. TRAMADOL [Suspect]
     Indication: PRODUCT USED FOR UNKNOWN INDICATION
     Dosage: (DF  ORAL)?(UNKNOWN UNTIL NOT CONTINUING)
     Route: 048
  2. QUETIAPINE [Suspect]
     Indication: PRODUCT USED FOR UNKNOWN INDICATION
     Dosage: (DF  ORAL)?(UNKNOWN UNTIL NOT CONTINUING)
     Route: 048
  3. DULOXETINE [Suspect]
     Indication: PRODUCT USED FOR UNKNOWN INDICATION
     Dosage: (DF  ORAL)?(UNKNOWN UNTIL NOT CONTINUING)?
     Route: 048
  4. LISINOPRIL [Suspect]
     Indication: PRODUCT USED FOR UNKNOWN INDICATION
     Dosage: (DF  ORAL)?(UNKNOWN UNTIL NOT CONTINUING)
     Route: 048
  5. METAXOLONE [Suspect]
     Indication: PRODUCT USED FOR UNKNOWN INDICATION
     Dosage: (DF  ORAL)?(UNKNOWN UNTIL NOT CONTINUING)
     Route: 048
  6. CYCLOBENZAPRINE [Suspect]
     Indication: PRODUCT USED FOR UNKNOWN INDICATION
     Dosage: (DF  ORAL)?(UNKNOWN UNTIL NOT CONTINUING)
     Route: 048
  7. ESZOPICLONE [Suspect]
     Indication: PRODUCT USED FOR UNKNOWN INDICATION
     Dosage: (DF  ORAL)?(UNKNOWN UNTIL NOT CONTINUING)
     Route: 048
  8. GABAPENTIN [Suspect]
     Indication: PRODUCT USED FOR UNKNOWN INDICATION
     Dosage: (DF  ORAL)?(UNKNOWN UNTIL NOT CONTINUING)
     Route: 048

REACTIONS (2)
  - Completed suicide [None]
  - Toxicity to various agents [None]
